FAERS Safety Report 24438361 (Version 1)
Quarter: 2024Q4

REPORT INFORMATION
  Report Type: Spontaneous
  Country: FR (occurrence: FR)
  Receive Date: 20241015
  Receipt Date: 20241015
  Transmission Date: 20250114
  Serious: Yes (Other)
  Sender: MERCK
  Company Number: None

PATIENT
  Age: 80 Year
  Sex: Female
  Weight: 63 kg

DRUGS (6)
  1. KEYTRUDA [Suspect]
     Active Substance: PEMBROLIZUMAB
     Indication: Metastatic malignant melanoma
     Dosage: 3 TREATMENTS CARRIED OUT
     Route: 042
     Dates: start: 20230119, end: 202306
  2. VALSARTAN [Concomitant]
     Active Substance: VALSARTAN
  3. NICARDIPINE HYDROCHLORIDE [Concomitant]
     Active Substance: NICARDIPINE HYDROCHLORIDE
  4. BRAFTOVI [Concomitant]
     Active Substance: ENCORAFENIB
     Indication: Metastatic malignant melanoma
     Dosage: 300 MILLIGRAM, QD
     Route: 048
     Dates: start: 202107
  5. MEKTOVI [Concomitant]
     Active Substance: BINIMETINIB
     Indication: Metastatic malignant melanoma
     Dosage: 90 MILLIGRAM, QD
     Route: 048
     Dates: start: 202107
  6. NEBIVOLOL [Concomitant]
     Active Substance: NEBIVOLOL

REACTIONS (1)
  - Confusional state [Recovered/Resolved]

NARRATIVE: CASE EVENT DATE: 20230206
